FAERS Safety Report 5707326-X (Version None)
Quarter: 2008Q2

REPORT INFORMATION
  Report Type: 
  Country: None (occurrence: None)
  Receive Date: 20080416
  Receipt Date: 20080407
  Transmission Date: 20081010
  Serious: Yes (Hospitalization)
  Sender: FDA-Public Use
  Company Number: FR-ASTRAZENECA-2008CG00523

PATIENT
  Age: 29991 Day
  Sex: Female

DRUGS (5)
  1. HYTACAND [Suspect]
     Indication: HYPERTENSION
     Dosage: 16 + 12.5 MG DAILY
     Route: 048
     Dates: end: 20080102
  2. FENOFIBRATE [Suspect]
     Indication: HYPERLIPIDAEMIA
     Route: 048
     Dates: end: 20080102
  3. FLECAINIDE ACETATE [Suspect]
     Indication: ATRIAL FIBRILLATION
     Route: 048
     Dates: end: 20080306
  4. TANAKAN [Concomitant]
     Indication: COGNITIVE DISORDER
     Route: 048
     Dates: end: 20080102
  5. NORDAZ [Concomitant]
     Dates: end: 20080102

REACTIONS (2)
  - BONE MARROW FAILURE [None]
  - RENAL FAILURE [None]
